FAERS Safety Report 14238341 (Version 1)
Quarter: 2017Q4

REPORT INFORMATION
  Report Type: Spontaneous
  Country: US (occurrence: None)
  Receive Date: 20171128
  Receipt Date: 20171128
  Transmission Date: 20180321
  Serious: Yes (Hospitalization)
  Sender: FDA-Public Use
  Company Number: None

PATIENT
  Age: 22 Year
  Sex: Female

DRUGS (1)
  1. DESMOPRESSIN ACET MDV  4MCG/ML [Suspect]
     Active Substance: DESMOPRESSIN ACETATE
     Indication: DIABETES INSIPIDUS
     Route: 058
     Dates: start: 20150113

REACTIONS (1)
  - Blood sodium abnormal [None]

NARRATIVE: CASE EVENT DATE: 20171127
